FAERS Safety Report 6072021-7 (Version None)
Quarter: 2009Q1

REPORT INFORMATION
  Report Type: 
  Country: None (occurrence: None)
  Receive Date: 20090205
  Receipt Date: 20090123
  Transmission Date: 20090719
  Serious: Yes (Hospitalization)
  Sender: FDA-Public Use
  Company Number: MEDI-0007680

PATIENT
  Age: 4 Month
  Sex: Female
  Weight: 4.1368 kg

DRUGS (3)
  1. SYNAGIS [Suspect]
     Indication: RESPIRATORY SYNCYTIAL VIRUS INFECTION
     Dosage: INTRAMUSCULAR
     Route: 030
     Dates: start: 20081021, end: 20081114
  2. SYNAGIS [Suspect]
     Indication: RESPIRATORY SYNCYTIAL VIRUS INFECTION
     Dosage: INTRAMUSCULAR
     Route: 030
     Dates: start: 20081114
  3. ZANTAC 150 [Concomitant]

REACTIONS (14)
  - CELLULITIS [None]
  - EOSINOPHIL COUNT INCREASED [None]
  - FLUSHING [None]
  - GENITAL RASH [None]
  - GENITAL SWELLING [None]
  - LYMPHOCYTE COUNT INCREASED [None]
  - MONOCYTE COUNT INCREASED [None]
  - NEUTROPHIL COUNT INCREASED [None]
  - PLATELET COUNT INCREASED [None]
  - RED BLOOD CELL NUCLEATED MORPHOLOGY PRESENT [None]
  - UPPER RESPIRATORY TRACT INFECTION [None]
  - URINE ODOUR ABNORMAL [None]
  - VOMITING [None]
  - VULVAL OEDEMA [None]
